FAERS Safety Report 7393166-5 (Version None)
Quarter: 2011Q2

REPORT INFORMATION
  Report Type: 
  Country: None (occurrence: None)
  Receive Date: 20110404
  Receipt Date: 20110321
  Transmission Date: 20111010
  Serious: Yes (Hospitalization)
  Sender: FDA-Public Use
  Company Number: CZ-MYLANLABS-2011S1006071

PATIENT
  Age: 55 Year
  Sex: Female

DRUGS (4)
  1. OLANZAPINE [Suspect]
     Indication: SCHIZOAFFECTIVE DISORDER
     Route: 065
  2. VENLAFAXINE [Suspect]
     Indication: SCHIZOAFFECTIVE DISORDER
     Route: 065
  3. LEVOMEPROMAZINE [Suspect]
     Indication: SCHIZOAFFECTIVE DISORDER
     Route: 065
  4. LEVOMEPROMAZINE [Suspect]
     Route: 065

REACTIONS (1)
  - ILEUS PARALYTIC [None]
